FAERS Safety Report 15530471 (Version 2)
Quarter: 2019Q3

REPORT INFORMATION
  Report Type: Spontaneous
  Country: US (occurrence: US)
  Receive Date: 20181018
  Receipt Date: 20190724
  Transmission Date: 20191004
  Serious: Yes (Other)
  Sender: FDA-Public Use
  Company Number: US-PFIZER INC-2018418722

PATIENT
  Age: 71 Year
  Sex: Female
  Weight: 66.68 kg

DRUGS (13)
  1. LYRICA [Suspect]
     Active Substance: PREGABALIN
     Indication: PULMONARY EMBOLISM
  2. ESTROTAB [Concomitant]
     Dosage: 5 MG, 1X/DAY
     Dates: start: 201904
  3. LYRICA [Suspect]
     Active Substance: PREGABALIN
     Indication: SPINAL STENOSIS
     Dosage: 60 MG, 2X/DAY
     Route: 048
     Dates: start: 1991
  4. OXYCODONE [Concomitant]
     Active Substance: OXYCODONE
     Dosage: 10 MG, 3X/DAY
     Dates: start: 2002
  5. METHADONE [Concomitant]
     Active Substance: METHADONE HYDROCHLORIDE
     Dosage: 10 MG, 3X/DAY
     Dates: start: 2002
  6. ESTROGEN [Concomitant]
     Active Substance: ESTROGENS
     Dosage: 5 MG, 1X/DAY
     Dates: start: 201904
  7. CELEBREX [Concomitant]
     Active Substance: CELECOXIB
     Indication: OSTEOARTHRITIS
  8. VOLTAREN [Concomitant]
     Active Substance: DICLOFENAC SODIUM
     Indication: SPINAL STENOSIS
  9. LYRICA [Suspect]
     Active Substance: PREGABALIN
     Indication: FIBROMYALGIA
     Dosage: 75 MG, 2X/DAY
     Route: 048
     Dates: start: 1991, end: 201808
  10. VOLTAREN [Concomitant]
     Active Substance: DICLOFENAC SODIUM
     Indication: FIBROMYALGIA
     Dosage: 150 MG, 1X/DAY
     Dates: start: 2002
  11. VITAMIN B [Concomitant]
     Active Substance: VITAMIN B
     Dosage: UNK, WEEKLY (1 SHOT WEEK)
  12. CELEBREX [Concomitant]
     Active Substance: CELECOXIB
     Indication: FIBROMYALGIA
     Dosage: 200 MG, 1X/DAY
  13. VALTREX [Concomitant]
     Active Substance: VALACYCLOVIR HYDROCHLORIDE
     Dosage: 500 MG, AS NEEDED (1X DAY OR 2 IF NEEDED)

REACTIONS (3)
  - Pulmonary embolism [Unknown]
  - Macular degeneration [Recovered/Resolved]
  - Dizziness [Not Recovered/Not Resolved]

NARRATIVE: CASE EVENT DATE: 2016
